FAERS Safety Report 6017133-9 (Version None)
Quarter: 2008Q4

REPORT INFORMATION
  Report Type: 
  Country: None (occurrence: None)
  Receive Date: 20081219
  Receipt Date: 20080723
  Transmission Date: 20090506
  Serious: Yes (Other)
  Sender: FDA-Public Use
  Company Number: TEST00208003152

PATIENT
  Age: 2 Year
  Sex: Male
  Weight: 21.7727 kg

DRUGS (2)
  1. ANDROGEL [Suspect]
     Indication: ACCIDENTAL EXPOSURE
     Dosage: DAILY TRANSCUTANEOUS
     Route: 062
     Dates: start: 20070101, end: 20080101
  2. TESTOSTERONE [Concomitant]

REACTIONS (6)
  - ACCIDENTAL EXPOSURE [None]
  - BLOOD TESTOSTERONE INCREASED [None]
  - BODY HEIGHT ABOVE NORMAL [None]
  - BONE DISORDER [None]
  - PENIS DISORDER [None]
  - PRECOCIOUS PUBERTY [None]
